FAERS Safety Report 24288018 (Version 2)
Quarter: 2024Q3

REPORT INFORMATION
  Report Type: Spontaneous
  Country: CZ (occurrence: CZ)
  Receive Date: 20240905
  Receipt Date: 20240927
  Transmission Date: 20241016
  Serious: Yes (Other)
  Sender: PFIZER
  Company Number: None

PATIENT
  Sex: Female

DRUGS (2)
  1. CLINDAMYCIN [Suspect]
     Active Substance: CLINDAMYCIN
     Indication: Erythema
     Dosage: 2 TABLETS EVERY 6 HOURS (8 TABLETS A DAY)
     Route: 048
     Dates: start: 202408, end: 202408
  2. CLINDAMYCIN [Suspect]
     Active Substance: CLINDAMYCIN
     Indication: Peripheral swelling

REACTIONS (5)
  - Haematochezia [Unknown]
  - Diarrhoea [Unknown]
  - Epistaxis [Unknown]
  - Abdominal pain [Unknown]
  - Overdose [Unknown]

NARRATIVE: CASE EVENT DATE: 20240801
